FAERS Safety Report 8427021-6 (Version None)
Quarter: 2012Q2

REPORT INFORMATION
  Report Type: 
  Country: None (occurrence: None)
  Receive Date: 20120323
  Receipt Date: 20110804
  Transmission Date: 20120825
  Serious: Yes (Death)
  Sender: FDA-Public Use
  Company Number: 163-21880-11043439

PATIENT
  Age: 82 Year
  Sex: Male

DRUGS (8)
  1. FLOMAX(TAMSULOSIN HYDROCHLORIDE)(UNKNOWN) [Concomitant]
  2. ULORIC (FEBUXOSTAT)(UNKNOWN) [Concomitant]
  3. LOSARTAN POTASSIUM [Concomitant]
  4. CARDURA (DOXAZOSIN MESILATE)(UNKNOWN) [Concomitant]
  5. FLOMAX [Concomitant]
  6. REVLIMID [Suspect]
     Indication: MYELODYSPLASTIC SYNDROME
     Dosage: 2.5 MG, 1 IN 2 D, PO
     Route: 048
     Dates: start: 20100804, end: 20110405
  7. NIFEDIPINE [Concomitant]
  8. SYNTHROID [Concomitant]

REACTIONS (1)
  - SUDDEN DEATH [None]
